FAERS Safety Report 20335748 (Version 1)
Quarter: 2022Q1

REPORT INFORMATION
  Report Type: Report from Study
  Country: MX (occurrence: MX)
  Receive Date: 20220114
  Receipt Date: 20220114
  Transmission Date: 20220423
  Serious: Yes (Death)
  Sender: FDA-Public Use
  Company Number: MX-NOVARTISPH-NVSC2022MX007825

PATIENT
  Age: 82 Year
  Sex: Male
  Weight: 60 kg

DRUGS (2)
  1. ENTRESTO [Suspect]
     Active Substance: SACUBITRIL\VALSARTAN
     Indication: Tachycardia
     Dosage: 1 DOSAGE FORM, BID OF 50 MG, STARTED APPROXIMATELY 2 YEARS AGO
     Route: 048
  2. ENTRESTO [Suspect]
     Active Substance: SACUBITRIL\VALSARTAN
     Dosage: 1 DOSAGE FORM, BID OF 100 MG
     Route: 048
     Dates: start: 202109, end: 202111

REACTIONS (2)
  - Death [Fatal]
  - Product use in unapproved indication [Unknown]

NARRATIVE: CASE EVENT DATE: 20211129
